FAERS Safety Report 20541997 (Version 1)
Quarter: 2022Q1

REPORT INFORMATION
  Report Type: Spontaneous
  Country: CN (occurrence: CN)
  Receive Date: 20220302
  Receipt Date: 20220302
  Transmission Date: 20220423
  Serious: Yes (Other)
  Sender: FDA-Public Use
  Company Number: CN-BAYER-2021A261375

PATIENT
  Age: 41 Year
  Sex: Male

DRUGS (3)
  1. XARELTO [Suspect]
     Active Substance: RIVAROXABAN
     Indication: Pulmonary embolism
     Dosage: 20 MG, QD
     Route: 048
     Dates: start: 20211121, end: 20211130
  2. HEPARIN CALCIUM [Concomitant]
     Active Substance: HEPARIN CALCIUM
     Indication: Anticoagulant therapy
     Dosage: 8000 IU, BID
     Route: 058
     Dates: start: 20211116, end: 20211119
  3. LECITHIN [Concomitant]
     Active Substance: LECITHIN
     Indication: Hepatobiliary disorder prophylaxis
     Dosage: 456 MG, TID
     Route: 048
     Dates: start: 20211117

REACTIONS (4)
  - Hepatic enzyme increased [Recovering/Resolving]
  - Incorrect dose administered [Unknown]
  - Inappropriate schedule of product administration [Unknown]
  - Product prescribing issue [Unknown]

NARRATIVE: CASE EVENT DATE: 20211121
